FAERS Safety Report 5256803-7 (Version None)
Quarter: 2007Q1

REPORT INFORMATION
  Report Type: 
  Country: None (occurrence: None)
  Receive Date: 20070306
  Receipt Date: 20050107
  Transmission Date: 20070707
  Serious: Yes (Hospitalization)
  Sender: FDA-Public Use
  Company Number: DE-BOEHRINGER INGELHEIM PHARMACEUTICALS, INC.-2004-DE-06326BY

PATIENT
  Sex: Male

DRUGS (10)
  1. KINZALMONO [Suspect]
     Indication: HYPERTENSION
     Route: 048
     Dates: start: 20040227
  2. KINZALKOMB [Suspect]
     Indication: HYPERTENSION
     Route: 048
     Dates: start: 20040312
  3. ASPIRIN [Concomitant]
     Route: 048
     Dates: start: 20020616
  4. SIMVASTATIN [Concomitant]
     Dates: start: 20020616
  5. ENALAPRIL MALEATE [Concomitant]
     Dates: end: 20040222
  6. CARVEDILOL [Concomitant]
  7. FUROSEMIDE [Concomitant]
  8. PLAVIX [Concomitant]
  9. HCT [Concomitant]
  10. KINZALKOMB [Concomitant]
     Route: 048

REACTIONS (3)
  - INNER EAR DISORDER [None]
  - TRANSIENT ISCHAEMIC ATTACK [None]
  - VERTIGO [None]
